FAERS Safety Report 7757490-6 (Version None)
Quarter: 2011Q3

REPORT INFORMATION
  Report Type: 
  Country: None (occurrence: None)
  Receive Date: 20110916
  Receipt Date: 20110915
  Transmission Date: 20111222
  Serious: Yes (Other)
  Sender: FDA-Public Use
  Company Number: DK-ABBOTT-11P-044-0855210-00

PATIENT
  Sex: Female

DRUGS (2)
  1. HUMIRA [Suspect]
     Indication: SERONEGATIVE ARTHRITIS
     Dates: start: 20100920
  2. PREDNISOLONE [Concomitant]
     Indication: SERONEGATIVE ARTHRITIS
     Dates: start: 20100920

REACTIONS (1)
  - PYREXIA [None]
